FAERS Safety Report 9219713 (Version 4)
Quarter: 2013Q3

REPORT INFORMATION
  Report Type: Spontaneous
  Country: US (occurrence: US)
  Receive Date: 20130409
  Receipt Date: 20130702
  Transmission Date: 20140515
  Serious: Yes (Hospitalization)
  Sender: FDA-Public Use
  Company Number: US-VERTEX PHARMACEUTICALS INC.-2013-004576

PATIENT
  Age: 61 Year
  Sex: Male
  Weight: 91 kg

DRUGS (20)
  1. INCIVEK [Suspect]
     Indication: HEPATITIS C
     Dosage: 750 MG, TID
     Route: 048
     Dates: start: 20130401, end: 201306
  2. PEGASYS [Suspect]
     Indication: HEPATITIS C
     Dosage: 180 ?G, QW
     Route: 058
     Dates: start: 20130401
  3. RIBASPHERE [Suspect]
     Indication: HEPATITIS C
     Dosage: 600 MG , BID
     Route: 048
     Dates: start: 20130401
  4. ATORVASTATIN [Concomitant]
     Indication: BLOOD CHOLESTEROL
     Dosage: 20 MG, QD
     Route: 048
  5. BENADRYL [Concomitant]
     Route: 048
  6. LOSARTAN [Concomitant]
  7. LORTAB [Concomitant]
  8. PREVACID [Concomitant]
  9. INSULIN [Concomitant]
  10. LANTUS [Concomitant]
  11. GABAPENTIN [Concomitant]
  12. LOVAZA [Concomitant]
  13. POTASSIUM [Concomitant]
  14. SYNTHROID [Concomitant]
  15. RANITIDINE [Concomitant]
  16. CILOSTAZOL [Concomitant]
  17. AMITIZA [Concomitant]
  18. LYRICA [Concomitant]
  19. WELLBUTRIN [Concomitant]
  20. LIDODERM [Concomitant]

REACTIONS (22)
  - Nephrolithiasis [Recovered/Resolved]
  - Pain in jaw [Not Recovered/Not Resolved]
  - Anorectal discomfort [Not Recovered/Not Resolved]
  - White blood cell count decreased [Not Recovered/Not Resolved]
  - Influenza like illness [Recovered/Resolved]
  - Oedema mouth [Not Recovered/Not Resolved]
  - Facial pain [Not Recovered/Not Resolved]
  - Osteitis [Not Recovered/Not Resolved]
  - Decreased appetite [Not Recovered/Not Resolved]
  - Abasia [Recovered/Resolved]
  - Glossodynia [Not Recovered/Not Resolved]
  - Swollen tongue [Not Recovered/Not Resolved]
  - Oral pain [Not Recovered/Not Resolved]
  - Infrequent bowel movements [Recovered/Resolved]
  - Fatigue [Not Recovered/Not Resolved]
  - Swelling face [Not Recovered/Not Resolved]
  - Rash [Not Recovered/Not Resolved]
  - Haemorrhoids [Recovered/Resolved]
  - Dysgeusia [Not Recovered/Not Resolved]
  - Diarrhoea [Recovered/Resolved]
  - Pruritus [Recovered/Resolved]
  - Nausea [Recovered/Resolved]
